FAERS Safety Report 4819127-5 (Version None)
Quarter: 2005Q4

REPORT INFORMATION
  Report Type: 
  Country: None (occurrence: None)
  Receive Date: 20051012
  Receipt Date: 20050808
  Transmission Date: 20060501
  Serious: No
  Sender: FDA-Public Use
  Company Number: A03200502408

PATIENT
  Sex: Male

DRUGS (1)
  1. UROXATRAL [Suspect]
     Indication: BENIGN PROSTATIC HYPERPLASIA
     Dosage: TABLET PR - 10 MG ORAL
     Route: 048

REACTIONS (3)
  - CENTRAL NERVOUS SYSTEM STIMULATION [None]
  - EYE ROLLING [None]
  - INSOMNIA [None]
